FAERS Safety Report 17871273 (Version 1)
Quarter: 2020Q2

REPORT INFORMATION
  Report Type: Spontaneous
  Country: US (occurrence: US)
  Receive Date: 20200606
  Receipt Date: 20200606
  Transmission Date: 20200714
  Serious: Yes (Death)
  Sender: FDA-Public Use
  Company Number: None

PATIENT
  Age: 45 Year
  Sex: Female
  Weight: 104.8 kg

DRUGS (1)
  1. ASPIRIN. [Suspect]
     Active Substance: ASPIRIN
     Dates: end: 20190703

REACTIONS (4)
  - Oedema [None]
  - Pain [None]
  - Jaundice [None]
  - Hepatic function abnormal [None]

NARRATIVE: CASE EVENT DATE: 20200601
